FAERS Safety Report 19536327 (Version 1)
Quarter: 2021Q3

REPORT INFORMATION
  Report Type: Spontaneous
  Country: SE (occurrence: SE)
  Receive Date: 20210713
  Receipt Date: 20210713
  Transmission Date: 20211014
  Serious: Yes (Disabling)
  Sender: FDA-Public Use
  Company Number: SE-ACCORD-231441

PATIENT
  Age: 23 Year
  Sex: Male
  Weight: 82 kg

DRUGS (1)
  1. FINASTERIDE. [Suspect]
     Active Substance: FINASTERIDE
     Indication: ANDROGENETIC ALOPECIA
     Dosage: 1 MG 1 TABLET PER DAY
     Route: 048
     Dates: start: 20190201, end: 20191204

REACTIONS (5)
  - Depression [Recovered/Resolved with Sequelae]
  - Gynaecomastia [Recovered/Resolved with Sequelae]
  - Erectile dysfunction [Not Recovered/Not Resolved]
  - Loss of libido [Not Recovered/Not Resolved]
  - Anhedonia [Recovering/Resolving]

NARRATIVE: CASE EVENT DATE: 201906
